FAERS Safety Report 21282982 (Version 1)
Quarter: 2022Q3

REPORT INFORMATION
  Report Type: Report from Study
  Country: US (occurrence: US)
  Receive Date: 20220901
  Receipt Date: 20220901
  Transmission Date: 20221026
  Serious: Yes (Hospitalization, Other)
  Sender: FDA-Public Use
  Company Number: US-BRISTOL-MYERS SQUIBB COMPANY-2022-098321

PATIENT
  Age: 70 Year
  Sex: Male
  Weight: 63.5 kg

DRUGS (1)
  1. NIVOLUMAB [Suspect]
     Active Substance: NIVOLUMAB
     Indication: Gastric cancer
     Route: 042
     Dates: start: 20220520, end: 20220811

REACTIONS (2)
  - Dyspnoea [Unknown]
  - Immune-mediated hepatitis [Unknown]

NARRATIVE: CASE EVENT DATE: 20220826
